FAERS Safety Report 11624511 (Version 3)
Quarter: 2015Q4

REPORT INFORMATION
  Report Type: Report from Study
  Country: AR (occurrence: AR)
  Receive Date: 20151013
  Receipt Date: 20151027
  Transmission Date: 20160304
  Serious: Yes (Congenital Anomaly)
  Sender: FDA-Public Use
  Company Number: PHHY2015AR123081

PATIENT
  Sex: Female

DRUGS (3)
  1. TRILEPTAL [Suspect]
     Active Substance: OXCARBAZEPINE
     Indication: FOETAL EXPOSURE DURING PREGNANCY
     Dosage: MATERNAL EXPOSURE (300 MG, QD)
     Route: 064
     Dates: start: 2008
  2. TRILEPTAL [Suspect]
     Active Substance: OXCARBAZEPINE
     Dosage: MATERNAL EXPOSURE (600 MG)
     Route: 064
  3. TRILEPTAL [Suspect]
     Active Substance: OXCARBAZEPINE
     Dosage: MATERNAL EXPOSURE (300 MG)
     Route: 063

REACTIONS (3)
  - Foetal exposure during pregnancy [Unknown]
  - Polydactyly [Recovered/Resolved]
  - Exposure during breast feeding [Unknown]
